FAERS Safety Report 23470110 (Version 2)
Quarter: 2024Q1

REPORT INFORMATION
  Report Type: Spontaneous
  Country: IT (occurrence: IT)
  Receive Date: 20240202
  Receipt Date: 20240213
  Transmission Date: 20240410
  Serious: Yes (Other)
  Sender: FDA-Public Use
  Company Number: IT-ASGENIA-AS2024000231

PATIENT
  Sex: Female

DRUGS (2)
  1. MELATONIN [Suspect]
     Active Substance: MELATONIN
     Indication: Exposure via breast milk
     Dosage: UNK
  2. MELATONIN [Suspect]
     Active Substance: MELATONIN
     Indication: Foetal exposure during pregnancy

REACTIONS (4)
  - Haemorrhage [Recovered/Resolved]
  - Haemorrhage neonatal [Recovered/Resolved]
  - Foetal exposure during pregnancy [Unknown]
  - Exposure via breast milk [Unknown]
